FAERS Safety Report 15392712 (Version 1)
Quarter: 2018Q3

REPORT INFORMATION
  Report Type: Spontaneous
  Country: US (occurrence: US)
  Receive Date: 20180917
  Receipt Date: 20180917
  Transmission Date: 20181010
  Serious: Yes (Hospitalization, Other)
  Sender: FDA-Public Use
  Company Number: US-SA-2018SA099074

PATIENT
  Age: 56 Year
  Sex: Female

DRUGS (2)
  1. ALDURAZYME [Suspect]
     Active Substance: LARONIDASE
     Dosage: 60 ML,QW
     Route: 041
     Dates: start: 20150608, end: 20180324
  2. ALDURAZYME [Suspect]
     Active Substance: LARONIDASE
     Indication: MUCOPOLYSACCHARIDOSIS I
     Dosage: 34.80/U, Q1
     Route: 041
     Dates: start: 20050620

REACTIONS (2)
  - Peritonsillar abscess [Unknown]
  - Product use issue [Unknown]

NARRATIVE: CASE EVENT DATE: 20180825
